FAERS Safety Report 17409993 (Version 3)
Quarter: 2020Q2

REPORT INFORMATION
  Report Type: Spontaneous
  Country: US (occurrence: US)
  Receive Date: 20200212
  Receipt Date: 20200511
  Transmission Date: 20200713
  Serious: Yes (Hospitalization, Other)
  Sender: FDA-Public Use
  Company Number: US-PFIZER INC-2020061155

PATIENT
  Age: 69 Year
  Sex: Female

DRUGS (1)
  1. XELJANZ [Suspect]
     Active Substance: TOFACITINIB CITRATE
     Indication: RHEUMATOID ARTHRITIS
     Dosage: 5 MG, 2X/DAY
     Route: 048
     Dates: start: 20190806

REACTIONS (13)
  - Pain [Recovered/Resolved]
  - Pneumonia [Unknown]
  - Abdominal pain upper [Unknown]
  - Depressed mood [Unknown]
  - Cerebral haemorrhage [Unknown]
  - Nausea [Unknown]
  - Impaired gastric emptying [Unknown]
  - Condition aggravated [Recovered/Resolved]
  - Concussion [Not Recovered/Not Resolved]
  - Musculoskeletal pain [Not Recovered/Not Resolved]
  - Dehydration [Unknown]
  - Dizziness postural [Unknown]
  - Fall [Unknown]

NARRATIVE: CASE EVENT DATE: 2020
